FAERS Safety Report 7493320-8 (Version None)
Quarter: 2011Q2

REPORT INFORMATION
  Report Type: 
  Country: None (occurrence: None)
  Receive Date: 20110520
  Receipt Date: 20110506
  Transmission Date: 20111010
  Serious: Yes (Hospitalization)
  Sender: FDA-Public Use
  Company Number: US-BAYER-200935794GPV

PATIENT
  Age: 63 Year
  Sex: Male
  Weight: 47 kg

DRUGS (8)
  1. SORAFENIB (RAF KINASE INHIBITOR) [Suspect]
     Indication: HEPATIC NEOPLASM MALIGNANT
     Route: 048
     Dates: start: 20090730, end: 20091001
  2. MORPHINE [Concomitant]
     Indication: ABDOMINAL PAIN
     Dosage: 1-3 TIMES PER DAY
     Dates: start: 20090813
  3. MOVIPREP [Concomitant]
     Indication: CONSTIPATION
     Dosage: 1 DF (DAILY DOSE), QD,
     Dates: start: 20090914, end: 20091001
  4. FENTANYL [Concomitant]
     Indication: ABDOMINAL PAIN
     Dosage: DAILY DOSE 1 DF
     Route: 062
     Dates: start: 20090727
  5. SPIRONOLACTONE [Concomitant]
     Indication: OEDEMA PERIPHERAL
     Dates: start: 20090930
  6. SORAFENIB (RAF KINASE INHIBITOR) [Suspect]
  7. FORTIMEL [Concomitant]
     Indication: WEIGHT DECREASED
     Dosage: 1 DF (DAILY DOSE), ,
     Dates: start: 20090813
  8. FORTIMEL [Concomitant]
     Indication: MEDICAL DIET

REACTIONS (6)
  - OEDEMA PERIPHERAL [None]
  - DECREASED APPETITE [None]
  - ABDOMINAL PAIN [None]
  - GENERAL PHYSICAL HEALTH DETERIORATION [None]
  - PARAESTHESIA [None]
  - ASTHENIA [None]
